FAERS Safety Report 9164571 (Version 2)
Quarter: 2013Q2

REPORT INFORMATION
  Report Type: Report from Study
  Country: FR (occurrence: FR)
  Receive Date: 20130315
  Receipt Date: 20130506
  Transmission Date: 20140414
  Serious: Yes (Death, Other)
  Sender: FDA-Public Use
  Company Number: PHHY2012FR083430

PATIENT
  Age: 75 Year
  Sex: Male
  Weight: 88 kg

DRUGS (2)
  1. AFINITOR [Suspect]
     Indication: RENAL CANCER METASTATIC
     Dosage: 10 MG, DAILY
     Route: 048
     Dates: start: 20110527
  2. AFINITOR [Suspect]
     Dosage: 5 MG, DAILY
     Route: 048
     Dates: start: 20110629, end: 201207

REACTIONS (10)
  - Tumour haemorrhage [Fatal]
  - Neutropenia [Recovered/Resolved]
  - Lung infection [Unknown]
  - Stomatitis [Unknown]
  - Anaemia [Unknown]
  - Thrombocytopenia [Unknown]
  - Hypertriglyceridaemia [Unknown]
  - Hypercholesterolaemia [Unknown]
  - Renal cancer metastatic [Unknown]
  - Malignant neoplasm progression [Unknown]
